FAERS Safety Report 11212208 (Version 1)
Quarter: 2015Q2

REPORT INFORMATION
  Report Type: Spontaneous
  Country: US (occurrence: US)
  Receive Date: 20150623
  Receipt Date: 20150623
  Transmission Date: 20150821
  Serious: Yes (Hospitalization)
  Sender: FDA-Public Use
  Company Number: US-ASTELLAS-2015US021429

PATIENT
  Age: 71 Year
  Sex: Male

DRUGS (2)
  1. XTANDI [Suspect]
     Active Substance: ENZALUTAMIDE
     Route: 048
     Dates: start: 20150515
  2. XTANDI [Suspect]
     Active Substance: ENZALUTAMIDE
     Indication: PROSTATE CANCER
     Route: 048
     Dates: start: 20150415, end: 20150425

REACTIONS (4)
  - Constipation [Unknown]
  - Haemorrhage [Unknown]
  - Penile pain [Recovering/Resolving]
  - Penile burning sensation [Unknown]

NARRATIVE: CASE EVENT DATE: 20150420
